FAERS Safety Report 24685731 (Version 1)
Quarter: 2024Q4

REPORT INFORMATION
  Report Type: Spontaneous
  Country: US (occurrence: None)
  Receive Date: 20241127
  Receipt Date: 20241127
  Transmission Date: 20250114
  Serious: Yes (Hospitalization)
  Sender: Public
  Company Number: None

PATIENT
  Sex: Female
  Weight: 60.78 kg

DRUGS (3)
  1. WINREVAIR [Suspect]
     Active Substance: SOTATERCEPT-CSRK
     Indication: Pulmonary arterial hypertension
     Dosage: OTHER FREQUENCY: EVERY 3 WEEKS;?
     Route: 058
     Dates: start: 202409
  2. TREPROSTINIL [Suspect]
     Active Substance: TREPROSTINIL
  3. C-TREPROSTINIL 0.2MG/ML [Concomitant]

REACTIONS (1)
  - Dyspnoea [None]
